FAERS Safety Report 4497415-2 (Version None)
Quarter: 2004Q4

REPORT INFORMATION
  Report Type: 
  Country: None (occurrence: None)
  Receive Date: 20041104
  Receipt Date: 20041022
  Transmission Date: 20050328
  Serious: Yes (Other)
  Sender: FDA-Public Use
  Company Number: 2004063259

PATIENT
  Sex: 0

DRUGS (3)
  1. NEURONTIN [Suspect]
     Indication: HERPES ZOSTER
  2. MOTRIN [Suspect]
     Indication: ILL-DEFINED DISORDER
  3. ROFECOXIB [Suspect]
     Indication: ILL-DEFINED DISORDER

REACTIONS (1)
  - OESOPHAGEAL ULCER [None]
